FAERS Safety Report 11444909 (Version 1)
Quarter: 2015Q3

REPORT INFORMATION
  Report Type: Spontaneous
  Country: GB (occurrence: None)
  Receive Date: 20150831
  Receipt Date: 20150831
  Transmission Date: 20151125
  Serious: Yes (Life-Threatening)
  Sender: FDA-Public Use
  Company Number: GB-000056

PATIENT
  Age: 22 Year
  Sex: Female

DRUGS (2)
  1. MERCAPTOPURINE. [Suspect]
     Active Substance: MERCAPTOPURINE
     Indication: CROHN^S DISEASE
     Dates: start: 20100219, end: 20150102
  2. HUMIRA [Suspect]
     Active Substance: ADALIMUMAB
     Dates: start: 201404, end: 20141205

REACTIONS (2)
  - Off label use [None]
  - Non-Hodgkin^s lymphoma [None]
